FAERS Safety Report 7968828-9 (Version None)
Quarter: 2011Q4

REPORT INFORMATION
  Report Type: 
  Country: None (occurrence: None)
  Receive Date: 20111209
  Receipt Date: 20111129
  Transmission Date: 20120403
  Serious: Yes (Other)
  Sender: FDA-Public Use
  Company Number: FR-JNJFOC-20111005403

PATIENT
  Age: 25 Year
  Sex: Female
  Weight: 60 kg

DRUGS (6)
  1. REMICADE [Suspect]
     Dosage: 13 INFUSIONS
     Route: 042
     Dates: start: 20101207
  2. REMICADE [Suspect]
     Indication: CROHN'S DISEASE
     Dosage: 13 INFUSIONS
     Route: 042
     Dates: start: 20100803
  3. REMICADE [Suspect]
     Dosage: 14TH INFUSION
     Route: 042
     Dates: start: 20111011
  4. REMICADE [Suspect]
     Dosage: 13 INFUSIONS
     Route: 042
     Dates: start: 20090929
  5. REMICADE [Suspect]
     Dosage: 13 INFUSIONS
     Route: 042
     Dates: start: 20100601
  6. REMICADE [Suspect]
     Dosage: 13 INFUSIONS
     Route: 042
     Dates: end: 20100511

REACTIONS (2)
  - MATERNAL EXPOSURE DURING PREGNANCY [None]
  - METRORRHAGIA [None]
